FAERS Safety Report 9374823 (Version 1)
Quarter: 2013Q2

REPORT INFORMATION
  Report Type: Spontaneous
  Country: US (occurrence: US)
  Receive Date: 20130628
  Receipt Date: 20130628
  Transmission Date: 20140414
  Serious: No
  Sender: FDA-Public Use
  Company Number: US-ASTRAZENECA-2013SE47109

PATIENT
  Age: 38 Year
  Sex: Male
  Weight: 68 kg

DRUGS (5)
  1. SEROQUEL [Suspect]
     Indication: BIPOLAR DISORDER
     Route: 048
     Dates: start: 2007
  2. SEROQUEL [Suspect]
     Indication: BIPOLAR DISORDER
     Dosage: GENERIC
     Route: 048
  3. SEROQUEL [Suspect]
     Indication: BIPOLAR DISORDER
     Dosage: CUT THE PILLS
     Route: 048
  4. CYMBALTA [Suspect]
     Indication: DEPRESSION
     Route: 065
     Dates: start: 2013
  5. CYMBALTA [Suspect]
     Indication: ANXIETY
     Route: 065
     Dates: start: 2013

REACTIONS (3)
  - Depression [Unknown]
  - Anxiety [Unknown]
  - Wrong technique in drug usage process [Unknown]
